FAERS Safety Report 7541316-X (Version None)
Quarter: 2011Q2

REPORT INFORMATION
  Report Type: 
  Country: None (occurrence: None)
  Receive Date: 20110612
  Receipt Date: 20110602
  Transmission Date: 20111010
  Serious: Yes (Hospitalization)
  Sender: FDA-Public Use
  Company Number: US-US-EMD SERONO, INC.-237560J08USA

PATIENT
  Sex: Female
  Weight: 57 kg

DRUGS (9)
  1. REGLAN [Concomitant]
     Indication: GASTROOESOPHAGEAL REFLUX DISEASE
     Dates: start: 20000101, end: 20080813
  2. ALBUTEROL SULFATE AUTOHALER [Concomitant]
     Indication: ASTHMA
     Dates: start: 19930101
  3. NASAREL [Concomitant]
     Indication: HYPERSENSITIVITY
  4. REBIF [Suspect]
     Indication: MULTIPLE SCLEROSIS
     Route: 058
     Dates: start: 20080604, end: 20110101
  5. TYLENOL-500 [Concomitant]
     Indication: PREMEDICATION
  6. PRILOSEC [Concomitant]
     Indication: GASTROOESOPHAGEAL REFLUX DISEASE
  7. TYLENOL-500 [Concomitant]
     Indication: DRUG THERAPY
  8. QVAR 40 [Concomitant]
     Indication: ASTHMA
     Dates: start: 19930101
  9. UNSPECIFIED MEDICATIONS [Concomitant]

REACTIONS (9)
  - CONCUSSION [None]
  - PAIN IN JAW [None]
  - FALL [None]
  - BALANCE DISORDER [None]
  - DYSPHAGIA [None]
  - PARKINSON'S DISEASE [None]
  - HEAD INJURY [None]
  - MULTIPLE SCLEROSIS RELAPSE [None]
  - SPINAL COMPRESSION FRACTURE [None]
